FAERS Safety Report 5739683-2 (Version None)
Quarter: 2008Q2

REPORT INFORMATION
  Report Type: 
  Country: None (occurrence: None)
  Receive Date: 20080513
  Receipt Date: 20080502
  Transmission Date: 20081010
  Serious: Yes (Other)
  Sender: FDA-Public Use
  Company Number: 2008AP001065

PATIENT
  Age: 49 Year
  Sex: Male

DRUGS (3)
  1. DESIPRAMINE HCL [Suspect]
     Indication: DEPRESSION
     Dosage: 250 MG; TAB; PO; QD; 150 MG; TAB; PO; QD PO
     Route: 048
     Dates: start: 20080401
  2. LITHIUM CARBONATE [Suspect]
     Indication: DEPRESSION
     Dosage: 900 MG; PO QD
     Route: 048
     Dates: start: 20080401, end: 20080401
  3. TRAZODONE HCL [Concomitant]

REACTIONS (2)
  - ELECTROCARDIOGRAM QRS COMPLEX PROLONGED [None]
  - ELECTROCARDIOGRAM QT PROLONGED [None]
